FAERS Safety Report 23246786 (Version 1)
Quarter: 2023Q4

REPORT INFORMATION
  Report Type: Spontaneous
  Country: US (occurrence: US)
  Receive Date: 20231130
  Receipt Date: 20231130
  Transmission Date: 20240109
  Serious: Yes (Death, Life-Threatening, Other)
  Sender: FDA-Public Use
  Company Number: US-Merck Healthcare KGaA-2023489607

PATIENT
  Age: 32 Year
  Sex: Female

DRUGS (4)
  1. METFORMIN HYDROCHLORIDE [Suspect]
     Active Substance: METFORMIN HYDROCHLORIDE
     Indication: Weight decreased
  2. PHENTERMINE HYDROCHLORIDE [Suspect]
     Active Substance: PHENTERMINE HYDROCHLORIDE
     Indication: Weight decreased
  3. HYDROCHLOROTHIAZIDE [Suspect]
     Active Substance: HYDROCHLOROTHIAZIDE
     Indication: Hypertension
  4. FLUOXETINE [Suspect]
     Active Substance: FLUOXETINE HYDROCHLORIDE
     Indication: Depression

REACTIONS (12)
  - Brain death [Fatal]
  - Subarachnoid haemorrhage [Fatal]
  - Brain oedema [Fatal]
  - Respiratory failure [Unknown]
  - Klebsiella sepsis [Unknown]
  - Lactic acidosis [Unknown]
  - Acute kidney injury [Unknown]
  - Adrenal insufficiency [Unknown]
  - Hypoglycaemia [Unknown]
  - Pancytopenia [Unknown]
  - Hypertransaminasaemia [Unknown]
  - Off label use [Unknown]
